FAERS Safety Report 7124328-X (Version None)
Quarter: 2010Q4

REPORT INFORMATION
  Report Type: 
  Country: None (occurrence: None)
  Receive Date: 20101126
  Receipt Date: 20101118
  Transmission Date: 20110411
  Serious: Yes (Disabling, Other)
  Sender: FDA-Public Use
  Company Number: PHHO2010GB11839

PATIENT
  Age: 55 Year
  Sex: Female
  Weight: 100 kg

DRUGS (4)
  1. ZOLEDRONATE T29581+SOLINJ+BM [Suspect]
     Indication: METASTASES TO BONE
     Dosage: 4 MG
     Route: 042
     Dates: start: 20050322
  2. CALCIUM [Concomitant]
  3. VITAMIN D [Concomitant]
  4. CORTICOSTEROIDS [Concomitant]

REACTIONS (10)
  - ABSCESS ORAL [None]
  - DENTAL CARIES [None]
  - IMPAIRED HEALING [None]
  - INFECTION [None]
  - MOUTH ULCERATION [None]
  - OSTEONECROSIS OF JAW [None]
  - PAIN [None]
  - SWELLING [None]
  - TOOTH DISORDER [None]
  - TOOTH EXTRACTION [None]
